FAERS Safety Report 4725121-5 (Version None)
Quarter: 2005Q3

REPORT INFORMATION
  Report Type: 
  Country: None (occurrence: None)
  Receive Date: 20050726
  Receipt Date: 20050719
  Transmission Date: 20060218
  Serious: Yes (Other)
  Sender: FDA-Public Use
  Company Number: PT-ABBOTT-05P-130-0306187-00

PATIENT
  Sex: Female
  Weight: 50 kg

DRUGS (4)
  1. HUMIRA [Suspect]
     Indication: RHEUMATOID ARTHRITIS
     Route: 058
     Dates: start: 20041124, end: 20050325
  2. HELENTRUB [Concomitant]
     Indication: ARTHRITIS
     Dates: start: 20030601
  3. FRIED 5 [Concomitant]
     Indication: VITAMIN SUPPLEMENTATION
     Dates: start: 20010101
  4. COMMERCIAL HUMIRA [Concomitant]
     Indication: RHEUMATOID ARTHRITIS
     Dates: start: 20040623

REACTIONS (1)
  - ABORTION SPONTANEOUS [None]
